FAERS Safety Report 12990003 (Version 1)
Quarter: 2016Q4

REPORT INFORMATION
  Report Type: Spontaneous
  Country: ES (occurrence: ES)
  Receive Date: 20161201
  Receipt Date: 20161201
  Transmission Date: 20170207
  Serious: Yes (Other)
  Sender: FDA-Public Use
  Company Number: PHHY2016ES161306

PATIENT
  Age: 16 Year
  Sex: Male

DRUGS (2)
  1. ILARIS [Suspect]
     Active Substance: CANAKINUMAB
     Indication: MAJEED^S SYNDROME
  2. ILARIS [Suspect]
     Active Substance: CANAKINUMAB
     Indication: OSTEOMYELITIS
     Route: 065

REACTIONS (2)
  - Venous thrombosis [Unknown]
  - Product use issue [Unknown]
